FAERS Safety Report 7438579-8 (Version None)
Quarter: 2011Q2

REPORT INFORMATION
  Report Type: 
  Country: None (occurrence: None)
  Receive Date: 20110426
  Receipt Date: 20110328
  Transmission Date: 20111010
  Serious: Yes (Hospitalization)
  Sender: FDA-Public Use
  Company Number: US-BAYER-2011-028753

PATIENT
  Sex: Female

DRUGS (5)
  1. ANTIPSYCHOTICS [Concomitant]
     Dosage: UNK
  2. LYRICA [Suspect]
     Indication: FIBROMYALGIA
     Dosage: 150 MG, TID
     Route: 048
     Dates: start: 20100101, end: 20110318
  3. NAPROXEN SODIUM [Suspect]
     Dosage: UNK
     Route: 048
     Dates: start: 20110101
  4. HYDROCODONE [Concomitant]
  5. LORTAB [Concomitant]

REACTIONS (4)
  - COLITIS [None]
  - BACTERIAL INFECTION [None]
  - MALAISE [None]
  - DIARRHOEA [None]
